FAERS Safety Report 18905260 (Version 1)
Quarter: 2021Q1

REPORT INFORMATION
  Report Type: Report from Study
  Country: AR (occurrence: AR)
  Receive Date: 20210217
  Receipt Date: 20210217
  Transmission Date: 20210420
  Serious: Yes (Hospitalization)
  Sender: FDA-Public Use
  Company Number: AR-JNJFOC-A-CH2019-190826

PATIENT
  Age: 46 Year
  Sex: Female
  Weight: 42 kg

DRUGS (1)
  1. OPSUMIT [Suspect]
     Active Substance: MACITENTAN
     Indication: PULMONARY ARTERIAL HYPERTENSION
     Dosage: 10 MG, QD
     Route: 048
     Dates: start: 20170901

REACTIONS (5)
  - Bronchial disorder [Unknown]
  - Lung disorder [Unknown]
  - Anaemia [Recovering/Resolving]
  - Scleroderma [Unknown]
  - Pneumonia [Unknown]
